FAERS Safety Report 7237653-9 (Version None)
Quarter: 2011Q1

REPORT INFORMATION
  Report Type: 
  Country: None (occurrence: None)
  Receive Date: 20110121
  Receipt Date: 20110113
  Transmission Date: 20110831
  Serious: Yes (Hospitalization, Other)
  Sender: FDA-Public Use
  Company Number: JP-ROCHE-712313

PATIENT
  Sex: Male
  Weight: 48 kg

DRUGS (8)
  1. ALIMTA [Suspect]
     Indication: LUNG ADENOCARCINOMA
     Dosage: DOSAGE IS UNCERTAIN
     Route: 041
     Dates: start: 20100326, end: 20100326
  2. AVASTIN [Suspect]
     Indication: LUNG ADENOCARCINOMA
     Route: 041
     Dates: start: 20100416, end: 20100611
  3. ALIMTA [Suspect]
     Dosage: DOSAGE IS UNCERTAIN
     Route: 041
     Dates: start: 20100416, end: 20100416
  4. CARBOPLATIN [Suspect]
     Indication: LUNG ADENOCARCINOMA
     Route: 041
     Dates: start: 20100611, end: 20100611
  5. CISPLATIN [Concomitant]
     Dosage: DOSAGE IS UNCERTAIN
     Route: 041
     Dates: start: 20100416, end: 20100416
  6. ALIMTA [Suspect]
     Dosage: START DATE REPORTED AS: 2010. DOSAGE IS UNCERTAIN
     Route: 041
     Dates: end: 20100611
  7. PARIET [Concomitant]
     Route: 048
     Dates: start: 20100629
  8. CISPLATIN [Concomitant]
     Indication: LUNG ADENOCARCINOMA
     Dosage: DOSAGE IS UNCERTAIN
     Route: 041
     Dates: start: 20100326, end: 20100326

REACTIONS (8)
  - SYNCOPE [None]
  - DISSEMINATED INTRAVASCULAR COAGULATION [None]
  - RENAL FAILURE ACUTE [None]
  - MELAENA [None]
  - ISCHAEMIC HEPATITIS [None]
  - GASTRIC ULCER HAEMORRHAGE [None]
  - PANCYTOPENIA [None]
  - SHOCK [None]
